FAERS Safety Report 4302705-X (Version None)
Quarter: 2004Q1

REPORT INFORMATION
  Report Type: 
  Country: None (occurrence: None)
  Receive Date: 20040220
  Receipt Date: 20040209
  Transmission Date: 20041129
  Serious: Yes (Death, Life-Threatening, Hospitalization)
  Sender: FDA-Public Use
  Company Number: US064214

PATIENT
  Age: 65 Year
  Sex: Female

DRUGS (16)
  1. ENBREL [Suspect]
     Indication: RHEUMATOID ARTHRITIS
     Dosage: 2 IN 1 WEEK, SC
     Route: 058
     Dates: start: 19980101, end: 20031018
  2. METHOTREXATE [Concomitant]
  3. WARFARIN SODIUM [Concomitant]
  4. LEVOTHYROXINE SODIUM [Concomitant]
  5. DIGOXIN [Concomitant]
  6. OXYBUTYNIN [Concomitant]
  7. BUMETANIDE [Concomitant]
  8. BETAXOLOL [Concomitant]
  9. THEOPHYLLINE [Concomitant]
  10. FLUOXETINE [Concomitant]
  11. METAXALONE [Concomitant]
  12. CARISOPRODOL [Concomitant]
  13. TYLOX [Concomitant]
  14. POTASSIUM CHLORIDE [Concomitant]
  15. TRAMADOL HYDROCHLORIDE W/ACETAMINOPHEN [Concomitant]
  16. METRONIDAZOLE [Concomitant]

REACTIONS (31)
  - BACK PAIN [None]
  - BLOOD CULTURE POSITIVE [None]
  - BLOOD PRESSURE SYSTOLIC DECREASED [None]
  - CARDIAC ARREST [None]
  - CEREBROVASCULAR ACCIDENT [None]
  - CULTURE URINE POSITIVE [None]
  - DECUBITUS ULCER [None]
  - DISSEMINATED INTRAVASCULAR COAGULATION [None]
  - DRUG TOXICITY [None]
  - ESCHERICHIA INFECTION [None]
  - FUNGAL INFECTION [None]
  - GRAND MAL CONVULSION [None]
  - HAND FRACTURE [None]
  - HIP FRACTURE [None]
  - KIDNEY INFECTION [None]
  - LOSS OF CONSCIOUSNESS [None]
  - NECK PAIN [None]
  - PAIN IN EXTREMITY [None]
  - PNEUMONIA ASPIRATION [None]
  - PNEUMONIA KLEBSIELLA [None]
  - PROTHROMBIN TIME PROLONGED [None]
  - RENAL FAILURE [None]
  - RENAL FAILURE ACUTE [None]
  - RESPIRATORY ARREST [None]
  - RESPIRATORY FAILURE [None]
  - SEPTIC SHOCK [None]
  - SPUTUM CULTURE POSITIVE [None]
  - STAPHYLOCOCCAL INFECTION [None]
  - UPPER LIMB FRACTURE [None]
  - UROSEPSIS [None]
  - VOMITING [None]
